FAERS Safety Report 6632787 (Version 3)
Quarter: 2019Q1

REPORT INFORMATION
  Report Type: Spontaneous
  Country: GB (occurrence: GB)
  Receive Date: 20080505
  Receipt Date: 20190221
  Transmission Date: 20190418
  Serious: Yes (Other)
  Sender: FDA-Public Use
  Company Number: GB-PFIZER INC-2008036660

PATIENT
  Age: 36 Year
  Sex: Male

DRUGS (1)
  1. CHAMPIX [Suspect]
     Active Substance: VARENICLINE TARTRATE
     Indication: SMOKING CESSATION THERAPY
     Dosage: 1 MG, UNK
     Route: 048
     Dates: start: 20080118, end: 20080301

REACTIONS (3)
  - Apathy [Unknown]
  - Depression [Unknown]
  - Polydipsia [Unknown]

NARRATIVE: CASE EVENT DATE: 20080301
